FAERS Safety Report 7675263-X (Version None)
Quarter: 2011Q3

REPORT INFORMATION
  Report Type: 
  Country: None (occurrence: None)
  Receive Date: 20110810
  Receipt Date: 20110729
  Transmission Date: 20111222
  Serious: Yes (Hospitalization, Other)
  Sender: FDA-Public Use
  Company Number: FR-ABBOTT-11P-056-0840103-00

PATIENT
  Age: 19 Year
  Sex: Female

DRUGS (9)
  1. HUMIRA [Suspect]
     Indication: CROHN'S DISEASE
     Route: 058
     Dates: start: 20100504
  2. CALCIUM CARBONATE [Concomitant]
     Indication: PRODUCT USED FOR UNKNOWN INDICATION
     Route: 048
  3. DOXYCYCLINE [Concomitant]
     Indication: PRODUCT USED FOR UNKNOWN INDICATION
     Route: 048
  4. ROWASA [Suspect]
     Indication: CROHN'S DISEASE
     Dosage: ONCE
     Route: 048
     Dates: start: 20090801, end: 20110602
  5. LACRYVISC [Concomitant]
     Indication: PRODUCT USED FOR UNKNOWN INDICATION
     Route: 047
  6. TRAMADOL (TOPALGIC) [Concomitant]
     Indication: PRODUCT USED FOR UNKNOWN INDICATION
     Dosage: LP
  7. ACETAMINOPHEN [Concomitant]
     Indication: PRODUCT USED FOR UNKNOWN INDICATION
     Route: 048
  8. ENTOCORT EC [Concomitant]
     Indication: PRODUCT USED FOR UNKNOWN INDICATION
     Route: 048
  9. PREDNISONE [Concomitant]
     Indication: PRODUCT USED FOR UNKNOWN INDICATION
     Route: 048

REACTIONS (11)
  - CHEST PAIN [None]
  - MYOCARDITIS [None]
  - PERICARDITIS [None]
  - DIARRHOEA HAEMORRHAGIC [None]
  - PYELONEPHRITIS [None]
  - ABDOMINAL PAIN LOWER [None]
  - DYSPHAGIA [None]
  - PYREXIA [None]
  - CROHN'S DISEASE [None]
  - INSOMNIA [None]
  - PAINFUL RESPIRATION [None]
